FAERS Safety Report 17821126 (Version 1)
Quarter: 2020Q2

REPORT INFORMATION
  Report Type: Spontaneous
  Country: US (occurrence: US)
  Receive Date: 20200525
  Receipt Date: 20200525
  Transmission Date: 20200714
  Serious: No
  Sender: FDA-Public Use
  Company Number: US-BIOCON-BCN-2020-000439

PATIENT
  Age: 82 Year
  Sex: Male

DRUGS (3)
  1. METOPROLOL. [Concomitant]
     Active Substance: METOPROLOL
     Indication: HYPERTENSION
     Dosage: 0.12.5 MG
     Route: 048
  2. ASPIRIN. [Concomitant]
     Active Substance: ASPIRIN
     Indication: CARDIAC DISORDER
     Route: 048
  3. SIMVASTATIN. [Suspect]
     Active Substance: SIMVASTATIN
     Indication: BLOOD CHOLESTEROL INCREASED
     Dosage: AS PER PHARMACY RECORD PRESCRIBED/DISPENSED SIMVASTATIN 40 MG TABLET SINCE 19-DEC-2018
     Route: 048

REACTIONS (2)
  - Wrong technique in product usage process [Unknown]
  - Pruritus [Recovering/Resolving]
